FAERS Safety Report 14935721 (Version 1)
Quarter: 2018Q2

REPORT INFORMATION
  Report Type: Report from Study
  Country: US (occurrence: US)
  Receive Date: 20180524
  Receipt Date: 20180524
  Transmission Date: 20180711
  Serious: Yes (Hospitalization, Disabling)
  Sender: FDA-Public Use
  Company Number: US-ACTELION-A-NJ2018-172534

PATIENT
  Age: 71 Year
  Sex: Female

DRUGS (3)
  1. BUMEX [Concomitant]
     Active Substance: BUMETANIDE
  2. OPSUMIT [Suspect]
     Active Substance: MACITENTAN
     Indication: PULMONARY ARTERIAL HYPERTENSION
     Dosage: 10 MG, QD
     Route: 048
     Dates: start: 20180419, end: 20180518
  3. PROCRIT [Concomitant]
     Active Substance: ERYTHROPOIETIN

REACTIONS (5)
  - Therapy non-responder [Unknown]
  - Anaemia [Unknown]
  - Fatigue [Unknown]
  - Full blood count decreased [Unknown]
  - Transfusion [Unknown]

NARRATIVE: CASE EVENT DATE: 20180517
